FAERS Safety Report 9703422 (Version 1)
Quarter: 2013Q4

REPORT INFORMATION
  Report Type: Spontaneous
  Country: US (occurrence: None)
  Receive Date: 20131121
  Receipt Date: 20131121
  Transmission Date: 20140711
  Serious: Yes (Other)
  Sender: FDA-Public Use
  Company Number: None

PATIENT
  Sex: 0

DRUGS (1)
  1. AMOX TR-K CLV [Suspect]
     Indication: SKIN DISORDER
     Route: 048
     Dates: start: 20131112, end: 20131112

REACTIONS (3)
  - Vomiting [None]
  - Diarrhoea [None]
  - Pain [None]
